FAERS Safety Report 5598599-5 (Version None)
Quarter: 2008Q1

REPORT INFORMATION
  Report Type: 
  Country: None (occurrence: None)
  Receive Date: 20080122
  Receipt Date: 20070403
  Transmission Date: 20080703
  Serious: No
  Sender: FDA-Public Use
  Company Number: US-BAUSCH-2006BL005668

PATIENT
  Age: 13 Year
  Sex: Male
  Weight: 67 kg

DRUGS (3)
  1. DESMOPRESSIN ACETATE [Suspect]
     Indication: ENURESIS
     Route: 045
     Dates: start: 20060826, end: 20060922
  2. DESMOPRESSIN ACETATE [Suspect]
     Route: 045
     Dates: start: 20060923
  3. ABILIFY [Concomitant]

REACTIONS (2)
  - DRUG INEFFECTIVE [None]
  - WEIGHT INCREASED [None]
